FAERS Safety Report 25556609 (Version 1)
Quarter: 2025Q3

REPORT INFORMATION
  Report Type: Spontaneous
  Country: US (occurrence: US)
  Receive Date: 20250715
  Receipt Date: 20250715
  Transmission Date: 20251021
  Serious: No
  Sender: NOVO NORDISK
  Company Number: US-NOVOPROD-1384018

PATIENT
  Sex: Female

DRUGS (1)
  1. OZEMPIC [Suspect]
     Active Substance: SEMAGLUTIDE
     Indication: Glycosylated haemoglobin increased
     Dosage: 1 MG, QW
     Route: 058
     Dates: start: 20241209

REACTIONS (5)
  - Hyperhidrosis [Unknown]
  - Unevaluable event [Unknown]
  - Device issue [Unknown]
  - Wrong technique in product usage process [Unknown]
  - Off label use [Unknown]
